FAERS Safety Report 16799168 (Version 1)
Quarter: 2019Q3

REPORT INFORMATION
  Report Type: Spontaneous
  Country: US (occurrence: US)
  Receive Date: 20190912
  Receipt Date: 20190912
  Transmission Date: 20191005
  Serious: No
  Sender: FDA-Public Use
  Company Number: US-PFIZER INC-2019394489

PATIENT
  Age: 6 Year
  Sex: Male

DRUGS (2)
  1. SIROLIMUS. [Suspect]
     Active Substance: SIROLIMUS
     Indication: PIK3CA RELATED OVERGROWTH SPECTRUM
     Dosage: UNK
  2. SIROLIMUS. [Suspect]
     Active Substance: SIROLIMUS
     Indication: PIK3CA-ACTIVATED MUTATION

REACTIONS (7)
  - Pain [Unknown]
  - Drug ineffective for unapproved indication [Unknown]
  - Product use issue [Unknown]
  - Bone loss [Unknown]
  - Musculoskeletal disorder [Unknown]
  - Off label use [Unknown]
  - Coagulopathy [Unknown]
